FAERS Safety Report 8368491-1 (Version None)
Quarter: 2012Q2

REPORT INFORMATION
  Report Type: 
  Country: None (occurrence: None)
  Receive Date: 20120518
  Receipt Date: 20120504
  Transmission Date: 20120825
  Serious: Yes (Death, Hospitalization, Congenital Anomaly, Other)
  Sender: FDA-Public Use
  Company Number: DE-RANBAXY-2012RR-56240

PATIENT
  Sex: Female
  Weight: 3 kg

DRUGS (9)
  1. CETIRIZINE HCL [Concomitant]
     Dosage: 8-9 GESTATIONAL WEEK
     Route: 064
  2. FOLIO FORTE [Concomitant]
     Indication: PROPHYLAXIS OF NEURAL TUBE DEFECT
     Dosage: 0.8 MG/DAY, 0-28.1 GESTATIONAL WEEK
     Route: 064
     Dates: start: 20100919, end: 20110404
  3. EMSER NASENSPRAY [Concomitant]
     Dosage: 13.1-14 GESTATIONAL WEEK
     Route: 064
     Dates: start: 20101220, end: 20101226
  4. METFORMIN HCL [Suspect]
     Dosage: 0-7 GESTATIONAL WEEK
     Route: 064
  5. KADEFUNGIN 3 KOMBI-PACKUNG [Concomitant]
     Dosage: ON THE 2ND TRIMESTER
     Route: 064
  6. LEVOTHYROXINE SODIUM [Concomitant]
     Dosage: 100 A?G/DAY, 0-40 GESTATIONAL WEEK
     Route: 064
     Dates: start: 20100913, end: 20110626
  7. UTROGEST [Concomitant]
     Dosage: 100 MG/DAY, 0-8 GESTATIONAL WEEK
     Route: 064
     Dates: start: 20100912, end: 20101114
  8. EBENOL [Concomitant]
     Dosage: 0-8.3 GESTATIONAL WEEK
     Route: 064
     Dates: end: 20101117
  9. APSOMOL [Concomitant]
     Dosage: 13.1-13.6 GESTATIONAL WEEK
     Route: 064
     Dates: start: 20101220, end: 20101225

REACTIONS (2)
  - TURNER'S SYNDROME [None]
  - HYPOPLASTIC LEFT HEART SYNDROME [None]
